FAERS Safety Report 14944909 (Version 2)
Quarter: 2018Q2

REPORT INFORMATION
  Report Type: Report from Study
  Country: GB (occurrence: GB)
  Receive Date: 20180529
  Receipt Date: 20180626
  Transmission Date: 20180711
  Serious: Yes (Hospitalization, Other)
  Sender: FDA-Public Use
  Company Number: GB-BRISTOL-MYERS SQUIBB COMPANY-BMS-2016-060402

PATIENT
  Sex: Female

DRUGS (1)
  1. ABATACEPT [Suspect]
     Active Substance: ABATACEPT
     Indication: RHEUMATOID ARTHRITIS
     Dosage: 125 MG, QWK
     Route: 058
     Dates: start: 20160426

REACTIONS (9)
  - Infection [Recovered/Resolved]
  - Dizziness [Unknown]
  - Somnolence [Unknown]
  - Product quality issue [Unknown]
  - Sepsis [Unknown]
  - Brain neoplasm malignant [Unknown]
  - Fatigue [Unknown]
  - Vomiting [Unknown]
  - Fall [Unknown]
